FAERS Safety Report 8895858 (Version 4)
Quarter: 2013Q2

REPORT INFORMATION
  Report Type: Spontaneous
  Country: JP (occurrence: JP)
  Receive Date: 20121108
  Receipt Date: 20130412
  Transmission Date: 20140414
  Serious: Yes (Other)
  Sender: FDA-Public Use
  Company Number: JP-PFIZER INC-2012272152

PATIENT
  Age: 46 Year
  Sex: Male
  Weight: 47.7 kg

DRUGS (10)
  1. LYRICA [Suspect]
     Indication: ANXIETY
     Dosage: 75 MG, 1X/DAY
     Route: 048
     Dates: start: 20120215, end: 20120221
  2. LYRICA [Suspect]
     Dosage: 150 MG, 2X/DAY
     Route: 048
     Dates: start: 20120222, end: 20120228
  3. LYRICA [Suspect]
     Dosage: 300 MG, 2X/DAY
     Route: 048
     Dates: start: 20120229, end: 20120301
  4. LYRICA [Suspect]
     Dosage: 150 MG, 1X/DAY
     Dates: start: 20120302, end: 20120305
  5. LYRICA [Suspect]
     Dosage: 75 MG, 1X/DAY
     Dates: start: 20120305, end: 20120307
  6. TOLEDOMIN [Suspect]
     Indication: ANXIETY
     Dosage: 25 MG, 1X/DAY
     Route: 048
     Dates: start: 20111130, end: 20111206
  7. TOLEDOMIN [Suspect]
     Dosage: 50 MG, 1X/DAY
     Route: 048
     Dates: start: 20111207, end: 20111213
  8. TOLEDOMIN [Suspect]
     Dosage: 75 MG, 1X/DAY
     Route: 048
     Dates: start: 20111214, end: 20111219
  9. TOLEDOMIN [Suspect]
     Dosage: 100 MG, 1X/DAY
     Route: 048
     Dates: start: 20111220, end: 20120301
  10. LOXOPROFEN [Concomitant]

REACTIONS (6)
  - Mania [Recovering/Resolving]
  - Emotional disorder [Recovering/Resolving]
  - Aggression [Recovering/Resolving]
  - Psychomotor hyperactivity [Recovering/Resolving]
  - Self esteem inflated [Recovering/Resolving]
  - Delusion of grandeur [Recovering/Resolving]
